FAERS Safety Report 8276413-7 (Version None)
Quarter: 2012Q2

REPORT INFORMATION
  Report Type: 
  Country: None (occurrence: None)
  Receive Date: 20120412
  Receipt Date: 20120403
  Transmission Date: 20120825
  Serious: Yes (Hospitalization)
  Sender: FDA-Public Use
  Company Number: US-BRISTOL-MYERS SQUIBB COMPANY-16499337

PATIENT
  Age: 63 Year
  Sex: Female

DRUGS (5)
  1. TOPROL-XL [Concomitant]
  2. LISINOPRIL [Suspect]
     Indication: HYPERTENSION
  3. PLAQUENIL [Concomitant]
  4. SULFASALAZINE [Concomitant]
  5. ORENCIA [Suspect]
     Dosage: DURATION:3AND HALF MONTHS
     Route: 042

REACTIONS (5)
  - ROTATOR CUFF REPAIR [None]
  - WEIGHT DECREASED [None]
  - HAEMOGLOBIN DECREASED [None]
  - FALL [None]
  - ADRENAL DISORDER [None]
